FAERS Safety Report 12409383 (Version 3)
Quarter: 2016Q2

REPORT INFORMATION
  Report Type: Spontaneous
  Country: CN (occurrence: CN)
  Receive Date: 20160526
  Receipt Date: 20160602
  Transmission Date: 20160815
  Serious: Yes (Hospitalization)
  Sender: FDA-Public Use
  Company Number: CN-UNITED THERAPEUTICS-UNT-2016-008327

PATIENT
  Sex: Female

DRUGS (2)
  1. REMODULIN [Suspect]
     Active Substance: TREPROSTINIL
     Dosage: UNK
     Route: 058
  2. REMODULIN [Suspect]
     Active Substance: TREPROSTINIL
     Dosage: 0.018.5?0.006.7 ?G/KG, UNK
     Route: 041

REACTIONS (2)
  - Caesarean section [Recovered/Resolved]
  - Pregnancy [Recovered/Resolved]
